FAERS Safety Report 10679175 (Version 3)
Quarter: 2015Q2

REPORT INFORMATION
  Report Type: Spontaneous
  Country: US (occurrence: US)
  Receive Date: 20141229
  Receipt Date: 20150521
  Transmission Date: 20150821
  Serious: Yes (Life-Threatening, Hospitalization)
  Sender: FDA-Public Use
  Company Number: US-BAYER-2014-190391

PATIENT
  Age: 32 Year
  Sex: Female
  Weight: 57 kg

DRUGS (13)
  1. JOLIVETTE [Concomitant]
     Active Substance: NORETHINDRONE
  2. BICITRA [CITRIC ACID,SODIUM CITRATE ACID] [Concomitant]
  3. LEXAPRO [Concomitant]
     Active Substance: ESCITALOPRAM OXALATE
  4. FOLIC ACID. [Concomitant]
     Active Substance: FOLIC ACID
  5. SIMETHICONE [Concomitant]
     Active Substance: DIMETHICONE\SILICON DIOXIDE\SIMETHICONE
  6. PRILOSEC [Concomitant]
     Active Substance: OMEPRAZOLE MAGNESIUM
  7. IBUPROFEN [IBUPROFEN] [Concomitant]
     Active Substance: IBUPROFEN
  8. TUMS [CALCIUM CARBONATE,MAGNESIUM CARBONATE,MAGNESIUM TRISILICATE] [Concomitant]
  9. PRENATAL VITAMINS [VIT C,VIT H,MIN NOS,VIT PP,RETINOL,VIT E,VIT B [Concomitant]
  10. ZANTAC [Concomitant]
     Active Substance: RANITIDINE HYDROCHLORIDE
  11. ULTRAM [Concomitant]
     Active Substance: TRAMADOL HYDROCHLORIDE
  12. PROBIOTICA [Concomitant]
     Active Substance: PROBIOTICS NOS
  13. MIRENA [Suspect]
     Active Substance: LEVONORGESTREL
     Indication: CONTRACEPTION
     Dosage: 20 MCG/24HR, CONT
     Route: 015
     Dates: start: 20120913, end: 20130130

REACTIONS (12)
  - Gastrointestinal motility disorder [None]
  - Abdominal pain [None]
  - Diarrhoea [None]
  - Proctalgia [None]
  - Infection [None]
  - Device issue [None]
  - Breast pain [None]
  - Injury [None]
  - General physical health deterioration [None]
  - Uterine perforation [None]
  - Back pain [None]
  - Neck pain [None]

NARRATIVE: CASE EVENT DATE: 201209
